FAERS Safety Report 7799471-2 (Version None)
Quarter: 2011Q4

REPORT INFORMATION
  Report Type: 
  Country: None (occurrence: None)
  Receive Date: 20111006
  Receipt Date: 20110927
  Transmission Date: 20120403
  Serious: Yes (Hospitalization)
  Sender: FDA-Public Use
  Company Number: PHEH2011US02308

PATIENT
  Sex: Female

DRUGS (4)
  1. METHADONE HCL [Concomitant]
     Dosage: 5 MG, PRN
     Route: 048
  2. DILAUDID [Concomitant]
     Dosage: 2 MG, PRN
  3. EXJADE [Suspect]
     Dosage: 500 MG, DAILY
     Route: 048
     Dates: start: 20081204
  4. TYLENOL-500 [Concomitant]

REACTIONS (3)
  - PAIN [None]
  - FATIGUE [None]
  - NAUSEA [None]
